FAERS Safety Report 26117666 (Version 1)
Quarter: 2025Q4

REPORT INFORMATION
  Report Type: Spontaneous
  Country: EU (occurrence: EU)
  Receive Date: 20251203
  Receipt Date: 20251203
  Transmission Date: 20260117
  Serious: Yes (Other)
  Sender: TAKEDA
  Company Number: None

PATIENT
  Age: 35 Year
  Sex: Female

DRUGS (2)
  1. BRINTELLIX [Suspect]
     Active Substance: VORTIOXETINE HYDROBROMIDE
     Indication: Social problem
     Dosage: 2.5 MILLIGRAM, QD
     Dates: start: 20251030, end: 20251102
  2. BRINTELLIX [Suspect]
     Active Substance: VORTIOXETINE HYDROBROMIDE
     Indication: Anxiety

REACTIONS (9)
  - Genital hypoaesthesia [Recovering/Resolving]
  - Libido decreased [Recovering/Resolving]
  - Female orgasmic disorder [Recovering/Resolving]
  - Orgasmic sensation decreased [Recovering/Resolving]
  - Vertigo [Recovering/Resolving]
  - Restlessness [Recovering/Resolving]
  - Palpitations [Recovering/Resolving]
  - Disturbance in sexual arousal [Recovering/Resolving]
  - Product use in unapproved indication [Unknown]

NARRATIVE: CASE EVENT DATE: 20251001
